FAERS Safety Report 5707877-8 (Version None)
Quarter: 2008Q2

REPORT INFORMATION
  Report Type: 
  Country: None (occurrence: None)
  Receive Date: 20080417
  Receipt Date: 20080417
  Transmission Date: 20081010
  Serious: Yes (Death, Life-Threatening, Hospitalization)
  Sender: FDA-Public Use
  Company Number: None

PATIENT
  Age: 66 Year
  Sex: Male
  Weight: 111.1 kg

DRUGS (3)
  1. HEPARIN LOCK-FLUSH [Suspect]
     Indication: CENTRAL VENOUS CATHETERISATION
  2. ZOSYN [Concomitant]
  3. SODIUM CHLORIDE INJ [Suspect]

REACTIONS (8)
  - HEPATIC FAILURE [None]
  - MULTI-ORGAN DISORDER [None]
  - NEUTROPHIL COUNT DECREASED [None]
  - PHARMACEUTICAL PRODUCT COMPLAINT [None]
  - RENAL FAILURE ACUTE [None]
  - RHABDOMYOLYSIS [None]
  - WEANING FAILURE [None]
  - WHITE BLOOD CELL COUNT DECREASED [None]
